FAERS Safety Report 18611166 (Version 1)
Quarter: 2020Q4

REPORT INFORMATION
  Report Type: Spontaneous
  Country: BG (occurrence: BG)
  Receive Date: 20201214
  Receipt Date: 20201214
  Transmission Date: 20210114
  Serious: Yes (Hospitalization, Other)
  Sender: FDA-Public Use
  Company Number: BG-TEVA-2020-BG-1856850

PATIENT
  Age: 57 Year
  Sex: Male

DRUGS (1)
  1. VALSARTAN. [Suspect]
     Active Substance: VALSARTAN
     Indication: HYPERTENSION
     Dosage: 160 MILLIGRAM DAILY;
     Route: 048
     Dates: start: 2010, end: 2016

REACTIONS (1)
  - Malignant melanoma [Recovered/Resolved]
